FAERS Safety Report 13197512 (Version 1)
Quarter: 2017Q1

REPORT INFORMATION
  Report Type: Spontaneous
  Country: US (occurrence: US)
  Receive Date: 20170208
  Receipt Date: 20170208
  Transmission Date: 20170428
  Serious: No
  Sender: FDA-Public Use
  Company Number: US-PERRIGO-16US014546

PATIENT
  Age: 10 Month
  Sex: Female
  Weight: 8.16 kg

DRUGS (1)
  1. IBUPROFEN. [Suspect]
     Active Substance: IBUPROFEN
     Indication: PYREXIA
     Dosage: 75 MG, EVERY 6 HOURS
     Route: 048
     Dates: start: 20160320, end: 20160322

REACTIONS (5)
  - Pharyngeal erythema [Not Recovered/Not Resolved]
  - Throat irritation [Unknown]
  - Condition aggravated [Unknown]
  - Discomfort [Unknown]
  - Oropharyngeal pain [Not Recovered/Not Resolved]

NARRATIVE: CASE EVENT DATE: 20160320
